FAERS Safety Report 4836785-X (Version None)
Quarter: 2005Q4

REPORT INFORMATION
  Report Type: 
  Country: None (occurrence: None)
  Receive Date: 20051123
  Receipt Date: 20051025
  Transmission Date: 20060501
  Serious: Yes (Hospitalization, Disabling, Other)
  Sender: FDA-Public Use
  Company Number: US-MERCK-0510USA08926

PATIENT
  Age: 50 Year
  Sex: Female

DRUGS (10)
  1. SINGULAIR [Suspect]
     Indication: HYPERSENSITIVITY
     Route: 048
     Dates: start: 20050715, end: 20050805
  2. SINGULAIR [Suspect]
     Route: 048
  3. SINGULAIR [Suspect]
     Indication: ASTHMA
     Route: 048
     Dates: start: 20050715, end: 20050805
  4. SINGULAIR [Suspect]
     Route: 048
  5. TEGRETOL [Suspect]
     Route: 048
  6. BACLOFEN [Concomitant]
     Indication: HYPOTONIA
     Route: 048
  7. BACLOFEN [Concomitant]
     Indication: PAIN
     Route: 048
  8. NEURONTIN [Concomitant]
     Indication: NEURALGIA
     Route: 048
  9. METHADONE HCL [Concomitant]
     Indication: PAIN MANAGEMENT
     Route: 048
     Dates: start: 19930101
  10. ALLEGRA [Concomitant]
     Indication: HYPERSENSITIVITY
     Route: 065

REACTIONS (8)
  - ACCIDENTAL OVERDOSE [None]
  - AMNESIA [None]
  - COORDINATION ABNORMAL [None]
  - HEADACHE [None]
  - LABORATORY TEST ABNORMAL [None]
  - LETHARGY [None]
  - PAIN [None]
  - VOMITING [None]
